FAERS Safety Report 11574514 (Version 1)
Quarter: 2015Q3

REPORT INFORMATION
  Report Type: Spontaneous
  Country: CZ (occurrence: CZ)
  Receive Date: 20150930
  Receipt Date: 20150930
  Transmission Date: 20151125
  Serious: Yes (Life-Threatening, Hospitalization)
  Sender: FDA-Public Use
  Company Number: CZ-FRESENIUS KABI-FK201504523

PATIENT
  Age: 35 Year
  Sex: Female

DRUGS (5)
  1. GENTAMICIN (MANUFACTURER UNKNOWN) [Suspect]
     Active Substance: GENTAMICIN
     Indication: ENDOMETRITIS
     Route: 065
  2. CEFOTAXIME [Suspect]
     Active Substance: CEFOTAXIME SODIUM
     Indication: INFECTION
     Route: 065
  3. METHYLPREDNISOLONE (MANUFACTURER UNKNOWN) [Suspect]
     Active Substance: METHYLPREDNISOLONE
     Indication: TOXIC SHOCK SYNDROME
     Route: 065
  4. AMOXICILLIN/CLAVUNALIC ACID (MANUFACTURER UNKNOWN) [Suspect]
     Active Substance: AMOXICILLIN\CLAVULANIC ACID
     Indication: TOXIC SHOCK SYNDROME
     Route: 042
  5. CLINDAMYCIN [Suspect]
     Active Substance: CLINDAMYCIN\CLINDAMYCIN PHOSPHATE
     Indication: ENDOMETRITIS
     Route: 065

REACTIONS (1)
  - Toxic epidermal necrolysis [Recovered/Resolved]
